FAERS Safety Report 10892626 (Version 1)
Quarter: 2015Q1

REPORT INFORMATION
  Report Type: Spontaneous
  Country: FR (occurrence: FR)
  Receive Date: 20150306
  Receipt Date: 20150306
  Transmission Date: 20150721
  Serious: Yes (Hospitalization)
  Sender: FDA-Public Use
  Company Number: FR-BAUSCH-BL-2015-003763

PATIENT
  Age: 33 Year
  Sex: Female

DRUGS (1)
  1. ACETIC ACID. [Suspect]
     Active Substance: ACETIC ACID
     Indication: COLPOSCOPY
     Route: 067

REACTIONS (1)
  - Chemical injury [Recovered/Resolved]

NARRATIVE: CASE EVENT DATE: 201211
